FAERS Safety Report 10389052 (Version 2)
Quarter: 2014Q3

REPORT INFORMATION
  Report Type: Report from Study
  Country: BR (occurrence: BR)
  Receive Date: 20140816
  Receipt Date: 20140923
  Transmission Date: 20150326
  Serious: Yes (Hospitalization, Other)
  Sender: FDA-Public Use
  Company Number: PHHY2014BR101676

PATIENT
  Age: 68 Year
  Sex: Female

DRUGS (3)
  1. FORADIL [Suspect]
     Active Substance: FORMOTEROL FUMARATE
     Indication: BRONCHOSPASM
     Dosage: UNK UKN, BID
     Route: 055
     Dates: start: 199808, end: 201103
  2. BEROTEC [Suspect]
     Active Substance: FENOTEROL HYDROBROMIDE
     Indication: BRONCHOSPASM
     Dosage: UNK UKN, QID
     Route: 055
     Dates: start: 199707, end: 2012
  3. IPRATROPIO BROMURO [Suspect]
     Active Substance: IPRATROPIUM BROMIDE
     Indication: BRONCHOSPASM
     Dosage: UNK UKN, QID
     Route: 055
     Dates: start: 199707, end: 2012

REACTIONS (8)
  - Angina unstable [Unknown]
  - Chronic obstructive pulmonary disease [Not Recovered/Not Resolved]
  - Depression [Not Recovered/Not Resolved]
  - Concomitant disease aggravated [Unknown]
  - Anxiety [Not Recovered/Not Resolved]
  - Asthma [Unknown]
  - Dyspnoea [Unknown]
  - Emphysema [Unknown]

NARRATIVE: CASE EVENT DATE: 200105
